FAERS Safety Report 9774358 (Version 1)
Quarter: 2013Q4

REPORT INFORMATION
  Report Type: Report from Study
  Country: CA (occurrence: CA)
  Receive Date: 20131220
  Receipt Date: 20131220
  Transmission Date: 20140711
  Serious: Yes (Other)
  Sender: FDA-Public Use
  Company Number: CA-JNJFOC-20131209895

PATIENT
  Sex: Female
  Weight: 112 kg

DRUGS (8)
  1. REMICADE [Suspect]
     Indication: PSORIATIC ARTHROPATHY
     Route: 042
     Dates: start: 20110825
  2. PANTOLOC [Concomitant]
     Route: 065
  3. CELEBREX [Concomitant]
     Route: 065
  4. CRESTOR [Concomitant]
     Route: 065
  5. CELEXA [Concomitant]
     Route: 065
  6. CYMBALTA [Concomitant]
     Route: 065
  7. IMOVANE [Concomitant]
     Route: 065
  8. TYLENOL [Concomitant]
     Route: 065

REACTIONS (1)
  - Osteoarthritis [Unknown]
